FAERS Safety Report 24942087 (Version 2)
Quarter: 2025Q1

REPORT INFORMATION
  Report Type: Spontaneous
  Country: US (occurrence: US)
  Receive Date: 20250207
  Receipt Date: 20250326
  Transmission Date: 20250409
  Serious: Yes (Other)
  Sender: ELI LILLY AND COMPANY
  Company Number: US-ELI_LILLY_AND_COMPANY-US202502000279

PATIENT
  Age: 59 Year
  Sex: Female

DRUGS (2)
  1. TALTZ [Suspect]
     Active Substance: IXEKIZUMAB
     Indication: Product used for unknown indication
     Dosage: 80 MG, MONTHLY (1/M)
     Route: 058
  2. MOUNJARO [Suspect]
     Active Substance: TIRZEPATIDE
     Indication: Diabetes mellitus
     Route: 065

REACTIONS (5)
  - Road traffic accident [Unknown]
  - Spinal fracture [Unknown]
  - Rib fracture [Unknown]
  - Hand fracture [Unknown]
  - Breast cancer [Unknown]

NARRATIVE: CASE EVENT DATE: 20240901
